FAERS Safety Report 6656148-4 (Version None)
Quarter: 2010Q1

REPORT INFORMATION
  Report Type: 
  Country: None (occurrence: None)
  Receive Date: 20100329
  Receipt Date: 20100308
  Transmission Date: 20100710
  Serious: Yes (Other)
  Sender: FDA-Public Use
  Company Number: PHEH2008US03140

PATIENT
  Sex: Male

DRUGS (29)
  1. ZOMETA [Suspect]
     Dosage: UNK, UNK
     Dates: start: 20020101
  2. MORPHINE SULFATE [Concomitant]
  3. LORAZEPAM [Concomitant]
  4. AZOPT [Concomitant]
  5. AMILORIDE HYDROCHLORIDE [Concomitant]
  6. MS CONTIN [Concomitant]
  7. ZOFRAN [Concomitant]
  8. FOLIC ACID [Concomitant]
  9. SANDOSTATIN LAR [Concomitant]
  10. CALCIUM WITH VITAMIN D [Concomitant]
  11. FORTICAL /KOR/ [Concomitant]
  12. RITALIN [Concomitant]
  13. CLARITIN [Concomitant]
  14. PEPCID AC [Concomitant]
  15. FLONASE [Concomitant]
  16. AMBIEN [Concomitant]
  17. ARANESP [Concomitant]
  18. COMPAZINE [Concomitant]
  19. MIACALCIN [Concomitant]
  20. FOLVITE [Concomitant]
  21. METHADONE [Concomitant]
  22. SANDOSTATIN [Concomitant]
  23. VITAMIN B-12 [Concomitant]
     Dosage: 1000 MG, QMO
  24. LOVENOX [Concomitant]
  25. QUADRAMET [Concomitant]
  26. CEPHALEXIN [Concomitant]
  27. INDOMETHACIN [Concomitant]
  28. PROCRIT                            /00909301/ [Concomitant]
  29. ZOLPIDEM [Concomitant]

REACTIONS (23)
  - ANAEMIA [None]
  - ANXIETY [None]
  - ATELECTASIS [None]
  - CARCINOID TUMOUR OF THE SMALL BOWEL [None]
  - CELLULITIS [None]
  - CHONDROCALCINOSIS PYROPHOSPHATE [None]
  - COLLAPSE OF LUNG [None]
  - EMOTIONAL DISTRESS [None]
  - GASTROINTESTINAL CARCINOMA [None]
  - HAEMATURIA [None]
  - INFECTION [None]
  - INJURY [None]
  - INTESTINAL RESECTION [None]
  - LYMPHADENOPATHY [None]
  - MALNUTRITION [None]
  - METASTASES TO BONE [None]
  - OSTEONECROSIS [None]
  - PAIN [None]
  - PHYSICAL DISABILITY [None]
  - PLEURAL EFFUSION [None]
  - RENAL FAILURE [None]
  - SCAR [None]
  - UNEVALUABLE EVENT [None]
